FAERS Safety Report 9023620 (Version 2)
Quarter: 2013Q1

REPORT INFORMATION
  Report Type: Spontaneous
  Country: US (occurrence: US)
  Receive Date: 20130121
  Receipt Date: 20130319
  Transmission Date: 20140127
  Serious: No
  Sender: FDA-Public Use
  Company Number: US-ROXANE LABORATORIES, INC.-2013-RO-00094RO

PATIENT
  Sex: Male

DRUGS (2)
  1. HYDROMORPHONE [Suspect]
     Indication: PAIN
     Dosage: 80 MG
     Route: 048
     Dates: start: 201301, end: 201301
  2. HYDROMORPHONE [Suspect]
     Route: 048
     Dates: start: 201301

REACTIONS (6)
  - Drug ineffective [Not Recovered/Not Resolved]
  - Overdose [Recovered/Resolved]
  - Headache [Recovered/Resolved]
  - Abdominal pain upper [Recovered/Resolved]
  - Diarrhoea [Recovered/Resolved]
  - Product quality issue [Not Recovered/Not Resolved]
